FAERS Safety Report 17936595 (Version 1)
Quarter: 2020Q2

REPORT INFORMATION
  Report Type: Spontaneous
  Country: US (occurrence: US)
  Receive Date: 20200624
  Receipt Date: 20200624
  Transmission Date: 20200714
  Serious: No
  Sender: FDA-Public Use
  Company Number: US-TEVA-2020-US-1792510

PATIENT

DRUGS (1)
  1. DULOXETINE TEVA [Suspect]
     Active Substance: DULOXETINE HYDROCHLORIDE
     Route: 065

REACTIONS (5)
  - Depression [Unknown]
  - Mood altered [Unknown]
  - Stress [Unknown]
  - Product substitution issue [Unknown]
  - Depressed mood [Unknown]
